FAERS Safety Report 5964483-8 (Version None)
Quarter: 2008Q4

REPORT INFORMATION
  Report Type: 
  Country: None (occurrence: None)
  Receive Date: 20081125
  Receipt Date: 20081111
  Transmission Date: 20090506
  Serious: Yes (Death, Hospitalization, Other)
  Sender: FDA-Public Use
  Company Number: PR-BAYER-PR-2007-043492

PATIENT
  Age: 65 Year
  Sex: Female
  Weight: 65 kg

DRUGS (10)
  1. BETASERON [Suspect]
     Indication: SECONDARY PROGRESSIVE MULTIPLE SCLEROSIS
     Dosage: TOTAL DAILY DOSE: 8 MIU
     Route: 058
     Dates: start: 20080117
  2. BETASERON [Suspect]
     Dosage: TOTAL DAILY DOSE: 8 MIU
     Route: 058
     Dates: start: 20071101, end: 20080104
  3. BETASERON [Suspect]
     Route: 058
     Dates: start: 19960408, end: 20070810
  4. HYZAAR [Concomitant]
     Dates: start: 19960101
  5. NEURONTIN [Concomitant]
     Dates: start: 19960101
  6. PLAVIX [Concomitant]
  7. CRESTOR [Concomitant]
  8. ASPIRIN [Concomitant]
     Dates: start: 19960101
  9. ORUDIS [Concomitant]
     Dosage: TOTAL DAILY DOSE: 75 MG
  10. 303 NATURAL RELAXANT [Concomitant]

REACTIONS (9)
  - ARTHRITIS [None]
  - CORONARY ARTERY DISEASE [None]
  - DEATH [None]
  - ENDOMETRIAL CANCER [None]
  - GAIT DISTURBANCE [None]
  - GENITAL HAEMORRHAGE [None]
  - MULTIPLE SCLEROSIS [None]
  - NERVOUSNESS [None]
  - VAGINAL HAEMORRHAGE [None]
